FAERS Safety Report 19420402 (Version 1)
Quarter: 2021Q2

REPORT INFORMATION
  Report Type: Spontaneous
  Country: US (occurrence: US)
  Receive Date: 20210616
  Receipt Date: 20210616
  Transmission Date: 20210717
  Serious: No
  Sender: FDA-Public Use
  Company Number: US-CIPLA LTD.-2020US06711

PATIENT

DRUGS (1)
  1. WARFARIN [Suspect]
     Active Substance: WARFARIN
     Indication: ATRIAL FIBRILLATION
     Dosage: 2 MG DAILY (EXCEPT 2 DAYS WEEKLY WHERE SHE TAKES 1 MG)
     Route: 065
     Dates: start: 2020

REACTIONS (4)
  - Contusion [Unknown]
  - Skin lesion [Unknown]
  - Product substitution issue [Unknown]
  - Jaw disorder [Unknown]

NARRATIVE: CASE EVENT DATE: 2020
